FAERS Safety Report 24622481 (Version 1)
Quarter: 2024Q4

REPORT INFORMATION
  Report Type: Spontaneous
  Country: BG (occurrence: BG)
  Receive Date: 20241115
  Receipt Date: 20241115
  Transmission Date: 20250114
  Serious: Yes (Other)
  Sender: UCB
  Company Number: BG-UCBSA-2024058499

PATIENT
  Age: 55 Year
  Sex: Female

DRUGS (1)
  1. BIMZELX [Suspect]
     Active Substance: BIMEKIZUMAB-BKZX
     Indication: Product used for unknown indication
     Dosage: UNK
     Dates: start: 2024

REACTIONS (1)
  - Pyoderma [Unknown]

NARRATIVE: CASE EVENT DATE: 20240101
